FAERS Safety Report 20687390 (Version 1)
Quarter: 2022Q2

REPORT INFORMATION
  Report Type: Spontaneous
  Country: US (occurrence: US)
  Receive Date: 20220408
  Receipt Date: 20220408
  Transmission Date: 20220721
  Serious: Yes (Other)
  Sender: FDA-Public Use
  Company Number: US-TAKEDA-2022TJP035667AA

PATIENT
  Age: 12 Year
  Sex: Female

DRUGS (4)
  1. RITUXIMAB [Suspect]
     Active Substance: RITUXIMAB
     Indication: Hashimoto^s encephalopathy
     Dosage: UNK
     Route: 065
  2. HUMAN IMMUNOGLOBULIN G [Suspect]
     Active Substance: HUMAN IMMUNOGLOBULIN G
     Indication: Hashimoto^s encephalopathy
     Dosage: UNK
     Route: 042
  3. METHYLPREDNISOLONE [Concomitant]
     Active Substance: METHYLPREDNISOLONE
     Indication: Hashimoto^s encephalopathy
     Dosage: UNK
     Route: 065
  4. DECADRON [Concomitant]
     Active Substance: DEXAMETHASONE
     Indication: Hashimoto^s encephalopathy
     Dosage: UNK
     Route: 065

REACTIONS (5)
  - Hypogammaglobulinaemia [Not Recovered/Not Resolved]
  - Pneumonia [Unknown]
  - Lymphopenia [Recovered/Resolved]
  - Sinusitis [Unknown]
  - Therapeutic response decreased [Unknown]
